FAERS Safety Report 13776432 (Version 1)
Quarter: 2017Q3

REPORT INFORMATION
  Report Type: Spontaneous
  Country: IT (occurrence: IT)
  Receive Date: 20170721
  Receipt Date: 20170721
  Transmission Date: 20171127
  Serious: Yes (Other)
  Sender: FDA-Public Use
  Company Number: IT-PFIZER INC-2611186

PATIENT
  Age: 64 Year
  Sex: Female

DRUGS (1)
  1. EPSODILAVE [Suspect]
     Active Substance: HEPARIN SODIUM
     Indication: PLASMA VISCOSITY ABNORMAL
     Dosage: 150 IU, AS NECESSARY
     Route: 042
     Dates: start: 20040101, end: 20040625

REACTIONS (2)
  - Neurological symptom [Recovered/Resolved]
  - Burning sensation [Recovered/Resolved]

NARRATIVE: CASE EVENT DATE: 20040625
